FAERS Safety Report 5328226-3 (Version None)
Quarter: 2007Q2

REPORT INFORMATION
  Report Type: 
  Country: None (occurrence: None)
  Receive Date: 20070514
  Receipt Date: 20070430
  Transmission Date: 20071010
  Serious: Yes (Death, Hospitalization)
  Sender: FDA-Public Use
  Company Number: 2007AL001780

PATIENT
  Age: 81 Year
  Sex: Male

DRUGS (7)
  1. SPIRONOLACTONE [Suspect]
     Indication: HYPERTENSION
     Dosage: 25 MG; QD; PO
     Route: 048
     Dates: end: 20070130
  2. PACLITAXEL [Concomitant]
  3. CARBOPLATIN [Concomitant]
  4. LEVOTHYROXINE SODIUM [Concomitant]
  5. FUROSEMIDE [Concomitant]
  6. AMIODARONE HCL [Concomitant]
  7. IRBESARTAN [Concomitant]

REACTIONS (4)
  - DIARRHOEA [None]
  - GENERAL PHYSICAL CONDITION ABNORMAL [None]
  - LUNG NEOPLASM MALIGNANT [None]
  - VOMITING [None]
